FAERS Safety Report 5384197-5 (Version None)
Quarter: 2007Q3

REPORT INFORMATION
  Report Type: 
  Country: None (occurrence: None)
  Receive Date: 20070711
  Receipt Date: 20070705
  Transmission Date: 20080115
  Serious: Yes (Other)
  Sender: FDA-Public Use
  Company Number: B0472267A

PATIENT
  Age: 42 Year
  Sex: Male

DRUGS (3)
  1. ADARTREL [Suspect]
     Indication: RESTLESS LEGS SYNDROME
     Route: 048
     Dates: start: 20070323
  2. ZOLPIDEM TARTRATE [Concomitant]
     Indication: RESTLESS LEGS SYNDROME
     Dosage: 5MG PER DAY
     Route: 048
  3. CLONAZEPAM [Concomitant]
     Indication: RESTLESS LEGS SYNDROME
     Route: 065

REACTIONS (10)
  - AGGRESSION [None]
  - ANXIETY [None]
  - DRUG DEPENDENCE [None]
  - DRUG WITHDRAWAL SYNDROME [None]
  - FEAR [None]
  - FOOD CRAVING [None]
  - HALLUCINATION [None]
  - INCREASED APPETITE [None]
  - INSOMNIA [None]
  - RESTLESSNESS [None]
